FAERS Safety Report 19477711 (Version 1)
Quarter: 2021Q2

REPORT INFORMATION
  Report Type: Spontaneous
  Country: CN (occurrence: CN)
  Receive Date: 20210630
  Receipt Date: 20210630
  Transmission Date: 20210717
  Serious: Yes (Hospitalization)
  Sender: FDA-Public Use
  Company Number: CN-PRA-000154

PATIENT
  Age: 4 Year

DRUGS (11)
  1. METHYLPREDNISOLONE. [Suspect]
     Active Substance: METHYLPREDNISOLONE
     Indication: PULMONARY ALVEOLAR HAEMORRHAGE
     Route: 048
  2. METHYLPREDNISOLONE. [Suspect]
     Active Substance: METHYLPREDNISOLONE
     Indication: PULMONARY ALVEOLAR HAEMORRHAGE
     Route: 048
  3. METHYLPREDNISOLONE. [Suspect]
     Active Substance: METHYLPREDNISOLONE
     Indication: PULMONARY ALVEOLAR HAEMORRHAGE
     Dosage: EQUIVALENTS TO 2 MG/KG/D
     Route: 042
  4. METHYLPREDNISOLONE. [Suspect]
     Active Substance: METHYLPREDNISOLONE
     Indication: PULMONARY ALVEOLAR HAEMORRHAGE
     Dosage: EQUAL TO 0.6 MG/KG/D
     Route: 048
  5. METHYLPREDNISOLONE. [Suspect]
     Active Substance: METHYLPREDNISOLONE
     Indication: PULMONARY ALVEOLAR HAEMORRHAGE
     Route: 048
  6. METHYLPREDNISOLONE. [Suspect]
     Active Substance: METHYLPREDNISOLONE
     Indication: PULMONARY ALVEOLAR HAEMORRHAGE
     Route: 048
  7. METHYLPREDNISOLONE. [Suspect]
     Active Substance: METHYLPREDNISOLONE
     Indication: PULMONARY ALVEOLAR HAEMORRHAGE
     Dosage: EQUIVALENTS TO 2 MG/KG/D
     Route: 048
  8. METHYLPREDNISOLONE. [Suspect]
     Active Substance: METHYLPREDNISOLONE
     Indication: PULMONARY ALVEOLAR HAEMORRHAGE
     Route: 048
  9. METHYLPREDNISOLONE. [Suspect]
     Active Substance: METHYLPREDNISOLONE
     Indication: PULMONARY ALVEOLAR HAEMORRHAGE
     Route: 048
  10. METHYLPREDNISOLONE. [Suspect]
     Active Substance: METHYLPREDNISOLONE
     Indication: PULMONARY ALVEOLAR HAEMORRHAGE
     Route: 048
  11. METHYLPREDNISOLONE. [Suspect]
     Active Substance: METHYLPREDNISOLONE
     Indication: PULMONARY ALVEOLAR HAEMORRHAGE
     Route: 048

REACTIONS (3)
  - Gastroenteritis adenovirus [Recovered/Resolved]
  - Myopathy [Recovered/Resolved]
  - Product use in unapproved indication [Unknown]
